FAERS Safety Report 4452257-9 (Version None)
Quarter: 2004Q3

REPORT INFORMATION
  Report Type: 
  Country: None (occurrence: None)
  Receive Date: 20040917
  Receipt Date: 20040909
  Transmission Date: 20050211
  Serious: Yes (Other)
  Sender: FDA-Public Use
  Company Number: US-JNJFOC-20040203727

PATIENT
  Sex: Female
  Weight: 46.27 kg

DRUGS (6)
  1. INFLIXIMAB [Suspect]
     Route: 042
  2. INFLIXIMAB [Suspect]
     Indication: CROHN'S DISEASE
     Route: 042
  3. AZATHIOPRINE [Concomitant]
     Indication: CROHN'S DISEASE
  4. PREDNISONE [Concomitant]
     Indication: CROHN'S DISEASE
  5. NARCOTIC ANALGESICS [Concomitant]
     Indication: CROHN'S DISEASE
  6. ANTIDEPRESSANTS [Concomitant]
     Indication: CROHN'S DISEASE

REACTIONS (1)
  - SKIN CANCER [None]
